FAERS Safety Report 5493304-5 (Version None)
Quarter: 2007Q4

REPORT INFORMATION
  Report Type: 
  Country: None (occurrence: None)
  Receive Date: 20071023
  Receipt Date: 20061005
  Transmission Date: 20080405
  Serious: No
  Sender: FDA-Public Use
  Company Number: US-BRISTOL-MYERS SQUIBB COMPANY-13531603

PATIENT

DRUGS (1)
  1. KENALOG-40 [Suspect]
     Indication: PAIN

REACTIONS (2)
  - ERYTHEMA [None]
  - FEELING HOT [None]
